FAERS Safety Report 7068477-3 (Version None)
Quarter: 2010Q4

REPORT INFORMATION
  Report Type: 
  Country: None (occurrence: None)
  Receive Date: 20101020
  Receipt Date: 20101014
  Transmission Date: 20110411
  Serious: Yes (Other)
  Sender: FDA-Public Use
  Company Number: 2010SP055037

PATIENT
  Age: 50 Year
  Sex: Male

DRUGS (1)
  1. ESLAX (ROCURONIUM BROMIDE / 01245702/  ) [Suspect]
     Indication: NEUROMUSCULAR BLOCKADE
     Dosage: ; IV
     Route: 042

REACTIONS (2)
  - ENDOTRACHEAL INTUBATION COMPLICATION [None]
  - LARYNGEAL OEDEMA [None]
